FAERS Safety Report 4354743-9 (Version None)
Quarter: 2004Q2

REPORT INFORMATION
  Report Type: 
  Country: None (occurrence: None)
  Receive Date: 20040507
  Receipt Date: 20040413
  Transmission Date: 20050107
  Serious: Yes (Death, Other)
  Sender: FDA-Public Use
  Company Number: JP-BRISTOL-MYERS SQUIBB COMPANY-12560496

PATIENT
  Age: 76 Year
  Sex: Female

DRUGS (7)
  1. TAXOL [Suspect]
     Indication: BREAST CANCER
     Route: 042
     Dates: start: 20040126, end: 20040304
  2. RADIOTHERAPY [Concomitant]
     Indication: BREAST CANCER
     Dosage: 44 GY; RIGHT CHEST
     Dates: start: 20040130, end: 20040301
  3. DECADRON [Concomitant]
     Route: 042
     Dates: start: 20040126, end: 20040304
  4. ZANTAC [Concomitant]
     Route: 042
     Dates: start: 20040126, end: 20040304
  5. VENA [Concomitant]
     Route: 048
     Dates: start: 20040126, end: 20040304
  6. GRAN [Concomitant]
     Route: 058
     Dates: start: 20040305, end: 20040305
  7. NEUTROGIN [Concomitant]
     Route: 058
     Dates: start: 20040306, end: 20040307

REACTIONS (5)
  - BREAST CANCER [None]
  - INTERSTITIAL LUNG DISEASE [None]
  - LYMPHANGIOSIS CARCINOMATOSA [None]
  - PLATELET COUNT DECREASED [None]
  - WHITE BLOOD CELL COUNT DECREASED [None]
